FAERS Safety Report 23636536 (Version 1)
Quarter: 2024Q1

REPORT INFORMATION
  Report Type: Spontaneous
  Country: US (occurrence: US)
  Receive Date: 20240315
  Receipt Date: 20240315
  Transmission Date: 20240410
  Serious: Yes (Life-Threatening, Hospitalization, Other)
  Sender: FDA-Public Use
  Company Number: US-SUN PHARMACEUTICAL INDUSTRIES LTD-2024R1-436043

PATIENT
  Age: 42 Year
  Sex: Male

DRUGS (2)
  1. PREDNISONE [Suspect]
     Active Substance: PREDNISONE
     Indication: Bronchopulmonary aspergillosis allergic
     Dosage: 40 MILLIGRAM/DAY
     Route: 065
  2. PREDNISONE [Suspect]
     Active Substance: PREDNISONE
     Dosage: 5 MILLIGRAM/DAY
     Route: 065

REACTIONS (3)
  - Condition aggravated [Unknown]
  - Withdrawal syndrome [Unknown]
  - Secondary adrenocortical insufficiency [Unknown]
